FAERS Safety Report 6930606-7 (Version None)
Quarter: 2010Q3

REPORT INFORMATION
  Report Type: 
  Country: None (occurrence: None)
  Receive Date: 20100818
  Receipt Date: 20100812
  Transmission Date: 20110219
  Serious: Yes (Hospitalization)
  Sender: FDA-Public Use
  Company Number: AU-MERCK-1005USA01254

PATIENT
  Sex: Male

DRUGS (6)
  1. ISENTRESS [Suspect]
     Route: 048
  2. KALETRA [Suspect]
     Route: 065
  3. FLUCONAZOLE [Suspect]
     Route: 065
  4. INTELENCE [Suspect]
     Route: 048
  5. TENOFOVIR DISOPROXIL FUMARATE [Suspect]
     Route: 065
  6. ZIDOVUDINE [Suspect]
     Route: 065

REACTIONS (2)
  - DIARRHOEA [None]
  - NEUTROPENIA [None]
